FAERS Safety Report 6127838-7 (Version None)
Quarter: 2009Q1

REPORT INFORMATION
  Report Type: 
  Country: None (occurrence: None)
  Receive Date: 20090320
  Receipt Date: 20090320
  Transmission Date: 20090719
  Serious: No
  Sender: FDA-Public Use
  Company Number: None

PATIENT
  Age: 72 Year
  Sex: Female
  Weight: 47.6277 kg

DRUGS (1)
  1. PAMIDRONATE DISODIUM [Suspect]
     Indication: OSTEOPOROSIS
     Dates: start: 20090121

REACTIONS (7)
  - AGITATION [None]
  - ANXIETY [None]
  - DYSPNOEA [None]
  - INSOMNIA [None]
  - OESOPHAGEAL DISORDER [None]
  - PRURITUS [None]
  - URTICARIA [None]
